FAERS Safety Report 6480158-3 (Version None)
Quarter: 2009Q4

REPORT INFORMATION
  Report Type: 
  Country: None (occurrence: None)
  Receive Date: 20091208
  Receipt Date: 20091119
  Transmission Date: 20100525
  Serious: No
  Sender: FDA-Public Use
  Company Number: US-B.I. PHARMACEUTICALS,INC./RIDGEFIELD-2009-BP-13533BP

PATIENT
  Sex: Male

DRUGS (5)
  1. ZANTAC 150 [Suspect]
     Indication: GASTROENTERITIS
     Dosage: 150 MG
     Route: 048
     Dates: start: 20091117
  2. ZANTAC 150 [Suspect]
     Dosage: 300 MG
     Route: 048
     Dates: start: 20091115
  3. LEVOXYL [Concomitant]
  4. ALPHAGAN [Concomitant]
  5. TIMOLOL [Concomitant]

REACTIONS (1)
  - HEADACHE [None]
